FAERS Safety Report 24198564 (Version 2)
Quarter: 2024Q3

REPORT INFORMATION
  Report Type: Report from Study
  Country: US (occurrence: US)
  Receive Date: 20240812
  Receipt Date: 20240909
  Transmission Date: 20241017
  Serious: Yes (Hospitalization, Other)
  Sender: HRA PHARMA
  Company Number: US-ORG100014127-2024000222

PATIENT
  Age: 49 Year
  Sex: Female

DRUGS (9)
  1. LYSODREN [Suspect]
     Active Substance: MITOTANE
     Indication: Adrenal gland cancer
     Dosage: 3 TAB IN MORNING, 4 TAB AT NIGHT
     Route: 048
     Dates: start: 20240227, end: 20240722
  2. LYSODREN [Suspect]
     Active Substance: MITOTANE
     Indication: Adrenal gland cancer
     Dosage: 3 TAB IN MORNING, 4 TAB AT NIGHT
     Route: 048
     Dates: start: 20240731, end: 20240808
  3. LYSODREN [Suspect]
     Active Substance: MITOTANE
     Indication: Adrenal gland cancer
     Dosage: 3 TAB IN MORNING, 4 TAB IN THE EVENING
     Dates: start: 20240810
  4. BUPROPION XL [Concomitant]
     Active Substance: BUPROPION HYDROCHLORIDE
     Indication: Product used for unknown indication
  5. HYDROCORTISONE 10MG TABLETS [Concomitant]
     Indication: Product used for unknown indication
  6. HYDROXYZINE HCL 10MG TABLETS [Concomitant]
     Indication: Product used for unknown indication
  7. METOCLOPRAMIDE [Concomitant]
     Active Substance: METOCLOPRAMIDE
     Indication: Product used for unknown indication
  8. TRAZODONE [Concomitant]
     Active Substance: TRAZODONE HYDROCHLORIDE
     Indication: Product used for unknown indication
  9. CHLORHEXIDINE 0.12% ORAL RINS 473ML [Concomitant]
     Indication: Product used for unknown indication

REACTIONS (2)
  - Blood potassium decreased [Recovered/Resolved]
  - Adrenal insufficiency [Recovered/Resolved]

NARRATIVE: CASE EVENT DATE: 20240722
